FAERS Safety Report 8145045-3 (Version None)
Quarter: 2012Q1

REPORT INFORMATION
  Report Type: 
  Country: None (occurrence: None)
  Receive Date: 20120217
  Receipt Date: 20120209
  Transmission Date: 20120608
  Serious: Yes (Hospitalization, Other)
  Sender: FDA-Public Use
  Company Number: PHHY2012EC013177

PATIENT
  Sex: Female

DRUGS (2)
  1. ASPIRIN [Concomitant]
     Dosage: 81 MG, ONE TABLET DAILY
  2. DIOVAN HCT [Suspect]
     Indication: HYPERTENSION
     Dosage: 1 DF X (80/12.5 MG), DAILY
     Route: 048
     Dates: start: 20080309

REACTIONS (1)
  - MYOCARDIAL INFARCTION [None]
